FAERS Safety Report 18402987 (Version 1)
Quarter: 2020Q4

REPORT INFORMATION
  Report Type: Spontaneous
  Country: NL (occurrence: NL)
  Receive Date: 20201020
  Receipt Date: 20201020
  Transmission Date: 20210114
  Serious: Yes (Other)
  Sender: FDA-Public Use
  Company Number: NL-TEVA-2020-NL-1839073

PATIENT
  Sex: Female
  Weight: 58 kg

DRUGS (4)
  1. PARACETAMOL TABLET  500MG / BRAND NAME NOT SPECIFIED [Concomitant]
     Dosage: 500 MG (MILLIGRAM),THERAPY START DATE:ASKU, THERAPY START DATE:ASKU
  2. HYDROCHLOORTHIAZIDE TABLET 25MG / BRAND NAME NOT SPECIFIED [Concomitant]
     Dosage: 25 MG (MILLIGRAM)THERAPY START DATE:ASKU,THERAPY START DATE:ASKU
  3. ACETYLSALICYLZUUR TABLET  80MG / BRAND NAME NOT SPECIFIED [Concomitant]
     Active Substance: ASPIRIN
     Dosage: 80 MG (MILLIGRAM),THERAPY START DATE:ASKU, THERAPY START DATE:ASKU
  4. AZITROMYCINE TABLET 500MG / BRAND NAME NOT SPECIFIED [Suspect]
     Active Substance: AZITHROMYCIN
     Indication: URINARY TRACT INFECTION
     Dosage: 500 MILLIGRAM DAILY;
     Dates: start: 20200915, end: 20200916

REACTIONS (1)
  - Agranulocytosis [Recovering/Resolving]
